FAERS Safety Report 7812642-1 (Version None)
Quarter: 2011Q4

REPORT INFORMATION
  Report Type: 
  Country: None (occurrence: None)
  Receive Date: 20111013
  Receipt Date: 20111005
  Transmission Date: 20120403
  Serious: Yes (Hospitalization)
  Sender: FDA-Public Use
  Company Number: US-BRISTOL-MYERS SQUIBB COMPANY-16135840

PATIENT
  Age: 67 Year
  Sex: Female
  Weight: 36 kg

DRUGS (1)
  1. COUMADIN [Suspect]
     Dates: start: 19970101, end: 19990101

REACTIONS (1)
  - CAROTID ARTERY OCCLUSION [None]
